FAERS Safety Report 5235298-3 (Version None)
Quarter: 2007Q1

REPORT INFORMATION
  Report Type: 
  Country: None (occurrence: None)
  Receive Date: 20070212
  Receipt Date: 20070130
  Transmission Date: 20070707
  Serious: Yes (Other)
  Sender: FDA-Public Use
  Company Number: US-BAYER-200710190BWH

PATIENT
  Age: 21 Year
  Sex: Female
  Weight: 51 kg

DRUGS (22)
  1. AVELOX [Suspect]
     Indication: PNEUMONIA
     Route: 048
     Dates: start: 20061223
  2. ROCEPHIN [Suspect]
     Indication: PNEUMONIA
     Route: 042
     Dates: start: 20061221
  3. VANCOMYCIN HYDROCHLORIDE [Suspect]
     Indication: PNEUMONIA
     Route: 042
     Dates: start: 20061222
  4. CIPROFLOXACIN [Suspect]
     Indication: PNEUMONIA
     Route: 042
     Dates: start: 20061222
  5. AZITHROMYCIN [Suspect]
     Indication: PNEUMONIA
     Route: 042
     Dates: start: 20061222
  6. BENADRYL [Suspect]
     Route: 048
     Dates: start: 20061222, end: 20061222
  7. TYLENOL [Concomitant]
     Route: 048
  8. ALBUTEROL [Concomitant]
     Route: 055
  9. MAALOX FAST BLOCKER [Concomitant]
  10. ASPIRIN [Concomitant]
  11. DULCOLAX [Concomitant]
  12. CLONIDINE [Concomitant]
  13. PROCRIT [Concomitant]
  14. FERROUS SULFATE TAB [Concomitant]
  15. LORTAB [Concomitant]
  16. MORPHINE SULFATE [Concomitant]
     Route: 042
  17. AMBIEN [Concomitant]
  18. CEFUROXIME [Concomitant]
     Dosage: TOTAL DAILY DOSE: 1000 MG
     Route: 048
     Dates: start: 20061229
  19. CEFUROXIME [Concomitant]
     Route: 048
     Dates: start: 20061224
  20. CEFUROXIME [Concomitant]
     Route: 048
     Dates: start: 20061224
  21. REMICADE [Concomitant]
     Route: 042
     Dates: start: 20060301
  22. SALINE [Concomitant]
     Dates: start: 20061201

REACTIONS (4)
  - APHASIA [None]
  - CONVULSION [None]
  - DYSARTHRIA [None]
  - DYSKINESIA [None]
